FAERS Safety Report 7215893-2 (Version None)
Quarter: 2011Q1

REPORT INFORMATION
  Report Type: 
  Country: None (occurrence: None)
  Receive Date: 20110105
  Receipt Date: 20110105
  Transmission Date: 20110831
  Serious: Yes (Hospitalization)
  Sender: FDA-Public Use
  Company Number: None

PATIENT
  Age: 72 Year
  Sex: Female
  Weight: 64.3 kg

DRUGS (10)
  1. TESSALON [Concomitant]
  2. TUSSINEX PENNKINETIC [Concomitant]
  3. SIMVASTATIN [Concomitant]
  4. ZOLPIDEM [Concomitant]
  5. VALPROIC ACID 250MG UPSHER-SMITH [Suspect]
     Indication: NEUROENDOCRINE TUMOUR
     Dosage: 250 MG TID PO
     Route: 048
     Dates: start: 20101025, end: 20101230
  6. ZOFRAN [Concomitant]
  7. LORTAB [Concomitant]
  8. TEMAZEPAM [Concomitant]
  9. GABAPENTIN [Concomitant]
  10. HYDRALAZINE 25MG CAMBER [Suspect]
     Dosage: 25MG QID PO
     Route: 048
     Dates: start: 20101108, end: 20101230

REACTIONS (3)
  - DYSPNOEA [None]
  - HAEMOTHORAX [None]
  - DEPRESSED LEVEL OF CONSCIOUSNESS [None]
